FAERS Safety Report 6098057-8 (Version None)
Quarter: 2009Q1

REPORT INFORMATION
  Report Type: 
  Country: None (occurrence: None)
  Receive Date: 20090227
  Receipt Date: 20090214
  Transmission Date: 20090719
  Serious: Yes (Other)
  Sender: FDA-Public Use
  Company Number: DE-AMGEN-UK332307

PATIENT
  Sex: Male
  Weight: 185 kg

DRUGS (2)
  1. VECTIBIX [Suspect]
     Indication: COLORECTAL CANCER
     Route: 042
  2. DEXAMETHASONE [Concomitant]
     Route: 042

REACTIONS (3)
  - POST PROCEDURAL HAEMORRHAGE [None]
  - THROMBOCYTOPENIA [None]
  - UROGENITAL HAEMORRHAGE [None]
